FAERS Safety Report 9358617 (Version 1)
Quarter: 2013Q2

REPORT INFORMATION
  Report Type: Spontaneous
  Country: CA (occurrence: CA)
  Receive Date: 20130620
  Receipt Date: 20130620
  Transmission Date: 20140414
  Serious: Yes (Other)
  Sender: FDA-Public Use
  Company Number: CA-GLAXOSMITHKLINE-A1018962A

PATIENT
  Age: 68 Year
  Sex: Female

DRUGS (4)
  1. VOTRIENT [Suspect]
     Indication: SARCOMA
     Dosage: 800MG PER DAY
     Route: 048
     Dates: start: 20130403, end: 20130613
  2. COLACE [Concomitant]
  3. SENOKOT [Concomitant]
  4. HYDROCHLOROTHIAZIDE [Concomitant]
     Dosage: 25MG PER DAY
     Dates: start: 20130410

REACTIONS (8)
  - Blood pressure increased [Not Recovered/Not Resolved]
  - Anxiety [Not Recovered/Not Resolved]
  - Blood potassium decreased [Unknown]
  - Blood sodium decreased [Unknown]
  - Feeling abnormal [Unknown]
  - Dyspnoea [Not Recovered/Not Resolved]
  - Blood electrolytes abnormal [Not Recovered/Not Resolved]
  - Malignant neoplasm progression [Not Recovered/Not Resolved]
